FAERS Safety Report 23225719 (Version 1)
Quarter: 2023Q4

REPORT INFORMATION
  Report Type: Spontaneous
  Country: US (occurrence: US)
  Receive Date: 20231124
  Receipt Date: 20231124
  Transmission Date: 20240110
  Serious: No
  Sender: FDA-Public Use
  Company Number: US-002147023-NVSC2023US186438

PATIENT
  Sex: Female
  Weight: 65.76 kg

DRUGS (2)
  1. COMBIPATCH [Suspect]
     Active Substance: ESTRADIOL\NORETHINDRONE ACETATE
     Indication: Musculoskeletal stiffness
     Dosage: UNK (0.05/0.14 MG, 1 PATCH EVERY 3-4 DAYS)
     Route: 062
  2. COMBIPATCH [Suspect]
     Active Substance: ESTRADIOL\NORETHINDRONE ACETATE
     Indication: Menopause
     Dosage: UNK (0.05/0.14 MG, 1 PATCH EVERY 3-4 DAYS)
     Route: 062
     Dates: start: 2023

REACTIONS (3)
  - Product storage error [Unknown]
  - Product administration error [Unknown]
  - Therapeutic product ineffective [Not Recovered/Not Resolved]

NARRATIVE: CASE EVENT DATE: 20230101
